FAERS Safety Report 7083577-X (Version None)
Quarter: 2010Q4

REPORT INFORMATION
  Report Type: 
  Country: None (occurrence: None)
  Receive Date: 20101103
  Receipt Date: 20101103
  Transmission Date: 20110411
  Serious: Yes (Other)
  Sender: FDA-Public Use
  Company Number: None

PATIENT
  Sex: Female
  Weight: 49.8957 kg

DRUGS (1)
  1. PERPHENAZINE [Suspect]
     Indication: PSYCHOTIC DISORDER
     Dosage: 4MG HS PO
     Route: 048
     Dates: start: 20100815, end: 20100819

REACTIONS (3)
  - LIP SWELLING [None]
  - PAIN [None]
  - SWELLING FACE [None]
